FAERS Safety Report 8728616 (Version 4)
Quarter: 2012Q4

REPORT INFORMATION
  Report Type: 
  Country: CA (occurrence: CA)
  Receive Date: 20120817
  Receipt Date: 20120928
  Transmission Date: 20130627
  Serious: Yes (Hospitalization, Other)
  Sender: FDA-Public Use
  Company Number: PHHY2012CA020357

PATIENT
  Age: 49 Year
  Sex: Male

DRUGS (11)
  1. CLOZARIL [Suspect]
     Indication: BIPOLAR DISORDER
     Dosage: 125 mg, BID
     Route: 048
     Dates: start: 20021128, end: 20120709
  2. CLOZARIL [Suspect]
     Route: 048
     Dates: end: 20120712
  3. EPIVAL [Concomitant]
     Indication: HYPOCALCAEMIA
     Dosage: 500 mg, TID
     Route: 048
  4. KEMADRIN [Concomitant]
     Indication: VIRAL HEPATITIS CARRIER
     Dosage: 2.5 mg, BID
     Route: 048
  5. FAMOTIDINE [Concomitant]
  6. PROCYCLIDINE [Concomitant]
  7. CARBOLITH [Concomitant]
  8. COLACE [Concomitant]
  9. LITHIUM [Concomitant]
  10. VALPROIC ACID [Concomitant]
  11. IRON [Concomitant]

REACTIONS (31)
  - Pancytopenia [Recovering/Resolving]
  - Thrombocytopenia [Recovering/Resolving]
  - Lymphopenia [Recovering/Resolving]
  - Leukopenia [Recovering/Resolving]
  - Neutropenia [Recovering/Resolving]
  - White blood cell count decreased [Recovering/Resolving]
  - General physical health deterioration [Unknown]
  - Gastroenteritis viral [Unknown]
  - Diarrhoea [Recovering/Resolving]
  - Abdominal discomfort [Unknown]
  - Chronic hepatitis B [Unknown]
  - Hepatic cirrhosis [Unknown]
  - Hypersplenism [Unknown]
  - Portal hypertension [Unknown]
  - Mental impairment [Unknown]
  - Consciousness fluctuating [Unknown]
  - Renal atrophy [Unknown]
  - Renal cyst [Unknown]
  - Chronic lymphocytic leukaemia [Unknown]
  - Lymphocytosis [Unknown]
  - Toxicity to various agents [Recovering/Resolving]
  - Dehydration [Recovering/Resolving]
  - Anaemia [Unknown]
  - Serum ferritin decreased [Unknown]
  - Confusional state [Unknown]
  - Delirium [Unknown]
  - Fatigue [Recovering/Resolving]
  - Antipsychotic drug level above therapeutic [Unknown]
  - Blood thyroid stimulating hormone increased [Unknown]
  - Eye disorder [Unknown]
  - Eating disorder [Unknown]
